FAERS Safety Report 17054898 (Version 1)
Quarter: 2019Q4

REPORT INFORMATION
  Report Type: Spontaneous
  Country: US (occurrence: US)
  Receive Date: 20191120
  Receipt Date: 20191120
  Transmission Date: 20200122
  Serious: Yes (Death, Life-Threatening, Hospitalization)
  Sender: FDA-Public Use
  Company Number: US-MYLANLABS-2019M1112043

PATIENT
  Age: 12 Year
  Sex: Female

DRUGS (4)
  1. CLOFARABINE. [Suspect]
     Active Substance: CLOFARABINE
     Indication: ACUTE MYELOID LEUKAEMIA
     Dosage: INDUCTION CHEMOTHERAPY
     Route: 065
  2. CYTARABINE. [Suspect]
     Active Substance: CYTARABINE
     Indication: ACUTE MYELOID LEUKAEMIA
     Dosage: HIGH DOSE
     Route: 065
  3. GEMTUZUMAB OZOGAMICIN [Suspect]
     Active Substance: GEMTUZUMAB OZOGAMICIN
     Indication: ACUTE MYELOID LEUKAEMIA
     Dosage: SECOND ROUND OF INDUCTION CHEMOTHERAPY
     Route: 065
  4. MITOXANTRONE [Suspect]
     Active Substance: MITOXANTRONE HYDROCHLORIDE
     Indication: ACUTE MYELOID LEUKAEMIA
     Dosage: SECOND ROUND OF INDUCTION CHEMOTHERAPY
     Route: 065

REACTIONS (4)
  - Treatment failure [Fatal]
  - Hyperammonaemic encephalopathy [Recovered/Resolved]
  - Vomiting [Unknown]
  - Ureaplasma infection [Recovered/Resolved]
